FAERS Safety Report 22092500 (Version 1)
Quarter: 2023Q1

REPORT INFORMATION
  Report Type: Spontaneous
  Country: US (occurrence: None)
  Receive Date: 20230313
  Receipt Date: 20230313
  Transmission Date: 20230418
  Serious: Yes (Other)
  Sender: FDA-Public Use
  Company Number: None

PATIENT
  Age: 68 Year
  Sex: Female

DRUGS (4)
  1. COSENTYX [Suspect]
     Active Substance: SECUKINUMAB
     Indication: Psoriasis
     Dosage: 300 MG ONCE MONTHLY UNDER THE SKIN?
     Route: 058
     Dates: start: 20211118
  2. COSENTYX [Suspect]
     Active Substance: SECUKINUMAB
     Indication: Psoriatic arthropathy
  3. IBUPROFEN [Concomitant]
     Active Substance: IBUPROFEN
  4. OTEZLA [Concomitant]
     Active Substance: APREMILAST

REACTIONS (2)
  - Arthralgia [None]
  - Psoriasis [None]

NARRATIVE: CASE EVENT DATE: 20230303
